FAERS Safety Report 7510794-4 (Version None)
Quarter: 2011Q2

REPORT INFORMATION
  Report Type: 
  Country: None (occurrence: None)
  Receive Date: 20110530
  Receipt Date: 20110517
  Transmission Date: 20111010
  Serious: Yes (Other)
  Sender: FDA-Public Use
  Company Number: US-AMGEN-USASP2011023710

PATIENT
  Age: 79 Year
  Sex: Male

DRUGS (2)
  1. FLUTAMIDE [Concomitant]
  2. XGEVA [Suspect]
     Indication: METASTASES TO BONE
     Dosage: 120 MG, UNK
     Route: 058
     Dates: start: 20110330

REACTIONS (3)
  - DEEP VEIN THROMBOSIS [None]
  - ASTHENIA [None]
  - OEDEMA PERIPHERAL [None]
